FAERS Safety Report 5352080-7 (Version None)
Quarter: 2007Q2

REPORT INFORMATION
  Report Type: 
  Country: None (occurrence: None)
  Receive Date: 20070611
  Receipt Date: 20070525
  Transmission Date: 20071010
  Serious: Yes (Other)
  Sender: FDA-Public Use
  Company Number: JP-SHR-JP-2007-019638

PATIENT
  Age: 26 Year
  Sex: Female

DRUGS (1)
  1. BETASERON [Suspect]
     Dosage: UNK, EVERY 2D
     Route: 058
     Dates: start: 20030101, end: 20050601

REACTIONS (2)
  - CEREBRAL CYST [None]
  - DEPRESSION [None]
